FAERS Safety Report 19924159 (Version 2)
Quarter: 2021Q4

REPORT INFORMATION
  Report Type: Spontaneous
  Country: CN (occurrence: CN)
  Receive Date: 20211006
  Receipt Date: 20211222
  Transmission Date: 20220303
  Serious: Yes (Other)
  Sender: FDA-Public Use
  Company Number: CN-PFIZER INC-202101276036

PATIENT
  Age: 20 Year
  Sex: Female

DRUGS (3)
  1. METHYLPREDNISOLONE SODIUM SUCCINATE [Suspect]
     Active Substance: METHYLPREDNISOLONE SODIUM SUCCINATE
     Indication: Encephalitis autoimmune
     Dosage: 1 G, DAILY (THE DOSAGE WAS DECREASED EVERY 7 DAYS)
     Route: 042
     Dates: start: 201810
  2. IMMUNOGLOBULINS [Concomitant]
     Indication: Encephalitis autoimmune
     Dosage: 0.4 G/KG
     Route: 042
     Dates: start: 201810
  3. IMMUNOGLOBULINS [Concomitant]
     Dosage: 0.4 G/KG
     Route: 042
     Dates: start: 201811

REACTIONS (5)
  - Pneumonia [Unknown]
  - Upper gastrointestinal haemorrhage [Unknown]
  - Urinary tract infection [Unknown]
  - Off label use [Unknown]
  - Drug ineffective for unapproved indication [Recovering/Resolving]

NARRATIVE: CASE EVENT DATE: 20181001
